FAERS Safety Report 9017119 (Version 1)
Quarter: 2013Q1

REPORT INFORMATION
  Report Type: Spontaneous
  Country: BR (occurrence: BR)
  Receive Date: 20130117
  Receipt Date: 20130117
  Transmission Date: 20140127
  Serious: Yes (Other)
  Sender: FDA-Public Use
  Company Number: PHHY2013BR004038

PATIENT
  Sex: Female
  Weight: 72 kg

DRUGS (3)
  1. RITALIN LA [Suspect]
     Indication: DISTURBANCE IN ATTENTION
     Dosage: UNK UKN, UNK
     Dates: start: 201210
  2. ALENIA [Concomitant]
     Indication: HYPERSENSITIVITY
  3. ALENIA [Concomitant]
     Indication: BRONCHITIS

REACTIONS (3)
  - Bronchitis [Unknown]
  - Hypersensitivity [Unknown]
  - Feeling abnormal [Unknown]
